FAERS Safety Report 7099543-4 (Version None)
Quarter: 2010Q4

REPORT INFORMATION
  Report Type: 
  Country: None (occurrence: None)
  Receive Date: 20101112
  Receipt Date: 20081106
  Transmission Date: 20110411
  Serious: No
  Sender: FDA-Public Use
  Company Number: US-KINGPHARMUSA00001-K200801294

PATIENT
  Age: 77 Year
  Sex: Female

DRUGS (1)
  1. LEVOXYL [Suspect]
     Dosage: 75 MCG, QD
     Route: 048
     Dates: start: 20080901

REACTIONS (2)
  - DRUG INEFFECTIVE [None]
  - FATIGUE [None]
